FAERS Safety Report 7199165-0 (Version None)
Quarter: 2010Q4

REPORT INFORMATION
  Report Type: 
  Country: None (occurrence: None)
  Receive Date: 20101215
  Receipt Date: 20101201
  Transmission Date: 20110411
  Serious: No
  Sender: FDA-Public Use
  Company Number: 023082

PATIENT
  Sex: Female
  Weight: 70.8 kg

DRUGS (2)
  1. KEPPRA [Suspect]
     Indication: CONVULSION
     Dosage: (500 MG BID)
     Dates: start: 20101031, end: 20101128
  2. ESTRADIOL [Concomitant]

REACTIONS (7)
  - ABDOMINAL PAIN [None]
  - AMNESIA [None]
  - ANXIETY [None]
  - BALANCE DISORDER [None]
  - DYSARTHRIA [None]
  - PALPITATIONS [None]
  - VISION BLURRED [None]
